FAERS Safety Report 8769874 (Version 2)
Quarter: 2012Q4

REPORT INFORMATION
  Report Type: 
  Country: US (occurrence: US)
  Receive Date: 20120905
  Receipt Date: 20121210
  Transmission Date: 20130627
  Serious: Yes (Hospitalization)
  Sender: FDA-Public Use
  Company Number: US-BIOGENIDEC-2012BI034900

PATIENT
  Age: 55 Year
  Sex: Female

DRUGS (19)
  1. TYSABRI [Suspect]
     Indication: MULTIPLE SCLEROSIS
     Route: 042
     Dates: start: 20080917, end: 20120706
  2. DIPHENHYDRAMINE [Concomitant]
     Indication: HYPERSENSITIVITY
     Route: 042
     Dates: start: 20120914
  3. DIPHENHYDRAMINE [Concomitant]
     Indication: HYPERSENSITIVITY
     Route: 048
     Dates: start: 20111213
  4. METHYLPHENIDATE [Concomitant]
     Route: 048
     Dates: start: 20120911
  5. METHYLPHENIDATE [Concomitant]
     Route: 048
     Dates: start: 20120911
  6. TRILEPTAL [Concomitant]
     Dates: start: 20120822
  7. GABAPENTIN [Concomitant]
     Dates: start: 20120801
  8. OXYBUTYNIN [Concomitant]
     Route: 048
     Dates: start: 20120726
  9. OMEPRAZOLE [Concomitant]
     Route: 048
     Dates: start: 20120518
  10. CHOLECALCIFEROL [Concomitant]
  11. PRAMIPEXOLE [Concomitant]
     Route: 048
  12. CLOMIPRAMINE [Concomitant]
     Route: 048
  13. ACETAMINOPHEN [Concomitant]
     Route: 048
  14. QUETIAPINE [Concomitant]
     Route: 048
  15. B COMPLEX VITAMIN [Concomitant]
     Route: 048
  16. XANAX [Concomitant]
     Route: 048
  17. ADVAIR [Concomitant]
  18. ALBUTEROL [Concomitant]
  19. ATROVENT [Concomitant]

REACTIONS (6)
  - Trigeminal neuralgia [Not Recovered/Not Resolved]
  - Chronic obstructive pulmonary disease [Not Recovered/Not Resolved]
  - Interstitial lung disease [Not Recovered/Not Resolved]
  - Hyponatraemia [Recovered/Resolved]
  - Leukocytosis [Recovered/Resolved]
  - Bronchitis [Not Recovered/Not Resolved]
